FAERS Safety Report 4562565-9 (Version None)
Quarter: 2005Q1

REPORT INFORMATION
  Report Type: 
  Country: None (occurrence: None)
  Receive Date: 20050124
  Receipt Date: 20050114
  Transmission Date: 20050727
  Serious: Yes (Hospitalization)
  Sender: FDA-Public Use
  Company Number: 003956

PATIENT
  Sex: Female

DRUGS (1)
  1. SEASONALE [Suspect]

REACTIONS (2)
  - ANAEMIA [None]
  - MENOMETRORRHAGIA [None]
